FAERS Safety Report 17834993 (Version 1)
Quarter: 2020Q2

REPORT INFORMATION
  Report Type: Report from Study
  Country: FR (occurrence: FR)
  Receive Date: 20200528
  Receipt Date: 20200528
  Transmission Date: 20200714
  Serious: Yes (Life-Threatening, Hospitalization)
  Sender: FDA-Public Use
  Company Number: FR-RECRO GAINESVILLE LLC-REPH-2020-000005

PATIENT
  Age: 51 Year
  Sex: Female
  Weight: 65 kg

DRUGS (1)
  1. VERAPAMIL HYDROCHLORIDE SUSTAINED RELEASE [Suspect]
     Active Substance: VERAPAMIL HYDROCHLORIDE
     Dosage: 9.6 GRAM, ONE TIME DOSE
     Route: 048

REACTIONS (11)
  - Overdose [Unknown]
  - Hypertriglyceridaemia [Recovered/Resolved]
  - Hepatocellular injury [Unknown]
  - Acute respiratory distress syndrome [Recovered/Resolved]
  - Sinus bradycardia [Unknown]
  - Acute kidney injury [Unknown]
  - Metabolic acidosis [Unknown]
  - Hypoxia [Recovered/Resolved]
  - Hyperlactacidaemia [Unknown]
  - Ejection fraction decreased [Unknown]
  - Hypotension [Unknown]
